FAERS Safety Report 5716855-4 (Version None)
Quarter: 2008Q2

REPORT INFORMATION
  Report Type: 
  Country: None (occurrence: None)
  Receive Date: 20080422
  Receipt Date: 20080408
  Transmission Date: 20081010
  Serious: Yes (Life-Threatening, Hospitalization, Disabling, Other)
  Sender: FDA-Public Use
  Company Number: GXKR2007GB00933

PATIENT
  Age: 69 Year
  Sex: Female
  Weight: 51 kg

DRUGS (10)
  1. CLARITHROMYCIN [Suspect]
  2. LIPITOR [Suspect]
     Indication: HYPERCHOLESTEROLAEMIA
     Dosage: 80 MG, QD, ORAL; 40 MG, QD, ORAL
     Route: 048
     Dates: start: 20040619, end: 20041108
  3. LIPITOR [Suspect]
     Indication: HYPERCHOLESTEROLAEMIA
     Dosage: 80 MG, QD, ORAL; 40 MG, QD, ORAL
     Route: 048
     Dates: start: 20041108, end: 20060120
  4. ASPIRIN [Concomitant]
  5. BISOPROLOL (BISOPROLOL) [Concomitant]
  6. LANSOPRAZOLE [Concomitant]
  7. NICORANDIL (NICORANDIL) [Concomitant]
  8. PLAVIX [Concomitant]
  9. RAMIPRIL [Concomitant]
  10. PENICILLIN V [Concomitant]

REACTIONS (11)
  - ACUTE MYOCARDIAL INFARCTION [None]
  - ANOREXIA [None]
  - DRUG INTERACTION [None]
  - INFLUENZA LIKE ILLNESS [None]
  - LIVER FUNCTION TEST ABNORMAL [None]
  - LOWER RESPIRATORY TRACT INFECTION [None]
  - RENAL FAILURE ACUTE [None]
  - RHABDOMYOLYSIS [None]
  - SELF-MEDICATION [None]
  - TENDERNESS [None]
  - VENTRICULAR DYSFUNCTION [None]
